FAERS Safety Report 8468888-5 (Version None)
Quarter: 2012Q2

REPORT INFORMATION
  Report Type: 
  Country: None (occurrence: None)
  Receive Date: 20120626
  Receipt Date: 20120624
  Transmission Date: 20120825
  Serious: Yes (Other)
  Sender: FDA-Public Use
  Company Number: US-PFIZER INC-2012151776

PATIENT
  Sex: Male
  Weight: 99.773 kg

DRUGS (2)
  1. VIAGRA [Suspect]
     Indication: ERECTILE DYSFUNCTION
     Dosage: UNK, AS NEEDED
     Route: 048
  2. CIALIS [Concomitant]
     Dosage: UNK

REACTIONS (4)
  - GASTROOESOPHAGEAL REFLUX DISEASE [None]
  - VOMITING [None]
  - MALAISE [None]
  - METAL POISONING [None]
